FAERS Safety Report 23507381 (Version 1)
Quarter: 2024Q1

REPORT INFORMATION
  Report Type: Report from Study
  Country: US (occurrence: US)
  Receive Date: 20240209
  Receipt Date: 20240209
  Transmission Date: 20240410
  Serious: Yes (Death)
  Sender: FDA-Public Use
  Company Number: US-MIRATI-MT2024PM05916

PATIENT
  Sex: Male

DRUGS (3)
  1. KRAZATI [Suspect]
     Active Substance: ADAGRASIB
     Indication: Bile duct cancer
     Dosage: 200 MG, BID
     Route: 048
     Dates: start: 20231222, end: 20231222
  2. KRAZATI [Suspect]
     Active Substance: ADAGRASIB
     Dosage: 400 MG, BID
     Route: 048
     Dates: start: 20231223, end: 20231223
  3. KRAZATI [Suspect]
     Active Substance: ADAGRASIB
     Dosage: 600 MG, BID
     Route: 048
     Dates: start: 20231224, end: 202401

REACTIONS (1)
  - Death [Fatal]

NARRATIVE: CASE EVENT DATE: 20240118
